FAERS Safety Report 10750781 (Version 1)
Quarter: 2015Q1

REPORT INFORMATION
  Report Type: Spontaneous
  Country: US (occurrence: US)
  Receive Date: 20150130
  Receipt Date: 20150130
  Transmission Date: 20150721
  Serious: Yes (Other)
  Sender: FDA-Public Use
  Company Number: US-BAYER-2015-008695

PATIENT
  Sex: Female

DRUGS (1)
  1. MIRENA [Suspect]
     Active Substance: LEVONORGESTREL
     Dosage: 20 MCG/24HR, CONT
     Route: 015
     Dates: start: 20130129, end: 20130202

REACTIONS (10)
  - Anhedonia [None]
  - Post procedural haemorrhage [None]
  - Injury [None]
  - Emotional distress [None]
  - Pain [None]
  - Anxiety [None]
  - Uterine perforation [None]
  - Procedural pain [None]
  - Psychological trauma [None]
  - Device dislocation [None]

NARRATIVE: CASE EVENT DATE: 20130129
